FAERS Safety Report 14785248 (Version 1)
Quarter: 2018Q2

REPORT INFORMATION
  Report Type: Spontaneous
  Country: JO (occurrence: JO)
  Receive Date: 20180420
  Receipt Date: 20180420
  Transmission Date: 20180711
  Serious: Yes (Hospitalization)
  Sender: FDA-Public Use
  Company Number: JO-FRESENIUS KABI-FK201804762

PATIENT
  Age: 3 Month
  Sex: Male

DRUGS (4)
  1. AMINO ACID [Concomitant]
     Active Substance: AMINO ACIDS
     Indication: DIARRHOEA
     Route: 065
  2. DEXTROSE 10% [Concomitant]
     Active Substance: DEXTROSE
     Indication: DIARRHOEA
     Route: 065
  3. INTRALIPID [Suspect]
     Active Substance: EGG PHOSPHOLIPIDS\GLYCERIN\SOYBEAN OIL
     Indication: NUTRITIONAL SUPPLEMENTATION
     Route: 041
  4. AMINO ACID [Concomitant]
     Active Substance: AMINO ACIDS
     Indication: DIARRHOEA
     Route: 065

REACTIONS (9)
  - Oxygen saturation decreased [Recovered/Resolved]
  - Accidental overdose [Recovered/Resolved]
  - Hypopnoea [Recovered/Resolved]
  - Pyrexia [Recovered/Resolved]
  - Vomiting [Recovered/Resolved]
  - Tachypnoea [Recovered/Resolved]
  - Blood triglycerides increased [Recovered/Resolved]
  - Metabolic acidosis [Recovered/Resolved]
  - Incorrect drug administration rate [Recovered/Resolved]
